FAERS Safety Report 5267376-7 (Version None)
Quarter: 2007Q1

REPORT INFORMATION
  Report Type: 
  Country: None (occurrence: None)
  Receive Date: 20070316
  Receipt Date: 20070306
  Transmission Date: 20070707
  Serious: Yes (Hospitalization)
  Sender: FDA-Public Use
  Company Number: BR-ROCHE-486097

PATIENT
  Age: 49 Year
  Sex: Female
  Weight: 85 kg

DRUGS (5)
  1. RIVOTRIL [Suspect]
     Indication: DEPRESSION
     Route: 048
     Dates: start: 20061115, end: 20070115
  2. RIVOTRIL [Suspect]
     Indication: INSOMNIA
     Route: 048
     Dates: start: 20070228, end: 20070228
  3. NEUROVITAN [Concomitant]
     Dosage: REPORTED AS THIAMINE/NEUROVIT.
     Route: 048
  4. BIOFAX [Concomitant]
     Dosage: GENERIC REPORTED AS ASCORBIC ACID, BETACAROTENE, VIT. E, ZINC.
     Route: 048
  5. UNSPECIFIED DRUG [Concomitant]
     Dosage: REPORTED AS MANIPULATED DRUG NOS.
     Route: 048

REACTIONS (4)
  - CONVULSION [None]
  - GALLBLADDER DISORDER [None]
  - NO THERAPEUTIC RESPONSE [None]
  - RENAL DISORDER [None]
